FAERS Safety Report 6387476-8 (Version None)
Quarter: 2009Q4

REPORT INFORMATION
  Report Type: 
  Country: None (occurrence: None)
  Receive Date: 20091005
  Receipt Date: 20090924
  Transmission Date: 20100525
  Serious: Yes (Hospitalization)
  Sender: FDA-Public Use
  Company Number: US-BIOGENIDEC-2007BI021350

PATIENT
  Age: 48 Year
  Sex: Female
  Weight: 60 kg

DRUGS (3)
  1. AVONEX [Suspect]
     Indication: MULTIPLE SCLEROSIS
     Route: 030
     Dates: start: 20001001, end: 20030901
  2. AVONEX [Suspect]
     Route: 030
     Dates: start: 20030901, end: 20031201
  3. AVONEX [Suspect]
     Route: 030
     Dates: start: 20031201

REACTIONS (5)
  - ANAEMIA [None]
  - PRURITUS [None]
  - SPONDYLITIS [None]
  - UTERINE LEIOMYOMA [None]
  - VAGINAL HAEMORRHAGE [None]
